FAERS Safety Report 12915183 (Version 1)
Quarter: 2016Q4

REPORT INFORMATION
  Report Type: Spontaneous
  Country: US (occurrence: US)
  Receive Date: 20161106
  Receipt Date: 20161106
  Transmission Date: 20170207
  Serious: No
  Sender: FDA-Public Use
  Company Number: US-RELYPSA-RLY2016002541

PATIENT
  Sex: Male

DRUGS (8)
  1. PROCARDIA [Concomitant]
     Active Substance: NIFEDIPINE
  2. SENSIPAR [Concomitant]
     Active Substance: CINACALCET HYDROCHLORIDE
  3. GABAPENTIN. [Concomitant]
     Active Substance: GABAPENTIN
  4. RENVELA [Concomitant]
     Active Substance: SEVELAMER CARBONATE
  5. VELTASSA [Suspect]
     Active Substance: PATIROMER
     Indication: HYPERKALAEMIA
     Dosage: 8.4 G, QD
     Route: 048
     Dates: start: 20160823, end: 2016
  6. LEVEMIR [Concomitant]
     Active Substance: INSULIN DETEMIR
  7. LANTUS [Concomitant]
     Active Substance: INSULIN GLARGINE
  8. CALCIUM ACETATE. [Concomitant]
     Active Substance: CALCIUM ACETATE

REACTIONS (1)
  - Constipation [Unknown]
